FAERS Safety Report 12663933 (Version 2)
Quarter: 2016Q4

REPORT INFORMATION
  Report Type: Spontaneous
  Country: US (occurrence: US)
  Receive Date: 20160818
  Receipt Date: 20161021
  Transmission Date: 20170207
  Serious: Yes (Hospitalization, Other)
  Sender: FDA-Public Use
  Company Number: US-PFIZER INC-2016390612

PATIENT
  Age: 82 Year
  Sex: Female
  Weight: 90.72 kg

DRUGS (1)
  1. DETROL LA [Suspect]
     Active Substance: TOLTERODINE TARTRATE
     Dosage: 4 MG, 1X/DAY AT BEDTIME
     Route: 048

REACTIONS (3)
  - Upper limb fracture [Unknown]
  - Haemorrhage [Unknown]
  - Joint injury [Unknown]
